FAERS Safety Report 6431552-8 (Version None)
Quarter: 2009Q4

REPORT INFORMATION
  Report Type: 
  Country: None (occurrence: None)
  Receive Date: 20091106
  Receipt Date: 20020319
  Transmission Date: 20100525
  Serious: Yes (Life-Threatening, Hospitalization)
  Sender: FDA-Public Use
  Company Number: BR-GENENTECH-101641

PATIENT
  Sex: Male

DRUGS (3)
  1. HERCEPTIN [Suspect]
     Indication: BLADDER CANCER
     Route: 042
     Dates: start: 20020226
  2. DOCETAXEL [Suspect]
     Indication: BLADDER CANCER
     Route: 042
     Dates: start: 20020225, end: 20020225
  3. GEMCITABINE [Suspect]
     Indication: BLADDER CANCER
     Route: 042
     Dates: start: 20020225, end: 20020225

REACTIONS (1)
  - TUMOUR LYSIS SYNDROME [None]
